FAERS Safety Report 5985957-X (Version None)
Quarter: 2008Q4

REPORT INFORMATION
  Report Type: 
  Country: None (occurrence: None)
  Receive Date: 20081205
  Receipt Date: 20081205
  Transmission Date: 20090506
  Serious: Yes (Hospitalization)
  Sender: FDA-Public Use
  Company Number: None

PATIENT
  Age: 65 Year
  Sex: Male
  Weight: 120 kg

DRUGS (8)
  1. MITOXANTRONE [Suspect]
     Indication: PROSTATE CANCER
     Dosage: 24 MG - INTRAVENOUS NOS
     Route: 042
     Dates: start: 20080729, end: 20080729
  2. PREDNISONE [Suspect]
     Dosage: 10 MG - ORAL
     Route: 048
     Dates: start: 20080708, end: 20080729
  3. WARFARIN SODIUM [Concomitant]
  4. GOSERELIN [Concomitant]
  5. ALBUTEROL SULFATE [Concomitant]
  6. FLUTICASONE PROPIONATE [Concomitant]
  7. ENALAPRIL MALEATE [Concomitant]
  8. DOMPERIDONE [Concomitant]

REACTIONS (6)
  - ACTIVITIES OF DAILY LIVING IMPAIRED [None]
  - BONE PAIN [None]
  - CEREBROVASCULAR ACCIDENT [None]
  - DYSPHAGIA [None]
  - ISCHAEMIC CEREBRAL INFARCTION [None]
  - LACUNAR INFARCTION [None]
